FAERS Safety Report 9063713 (Version 1)
Quarter: 2013Q1

REPORT INFORMATION
  Report Type: Report from Study
  Country: US (occurrence: US)
  Receive Date: 20130131
  Receipt Date: 20130131
  Transmission Date: 20140127
  Serious: No
  Sender: FDA-Public Use
  Company Number: US-ABBOTT-12P-163-0998454-00

PATIENT
  Age: 40 None
  Sex: Female
  Weight: 65.38 kg

DRUGS (3)
  1. HUMIRA [Suspect]
     Indication: CROHN^S DISEASE
     Dosage: 180MG DAY 1, 80MG DAY 15, 40MG DAY 29
     Route: 058
     Dates: start: 20120929
  2. LYRICA [Concomitant]
     Indication: PAIN IN EXTREMITY
  3. LYRICA [Concomitant]
     Indication: PAIN IN EXTREMITY

REACTIONS (4)
  - Pyrexia [Not Recovered/Not Resolved]
  - Back pain [Not Recovered/Not Resolved]
  - Cough [Not Recovered/Not Resolved]
  - Nasal congestion [Not Recovered/Not Resolved]
